FAERS Safety Report 9173215 (Version 1)
Quarter: 2013Q1

REPORT INFORMATION
  Report Type: Report from Study
  Country: CA (occurrence: CA)
  Receive Date: 20130320
  Receipt Date: 20130320
  Transmission Date: 20140127
  Serious: Yes (Other)
  Sender: FDA-Public Use
  Company Number: CA-JNJFOC-20130304914

PATIENT
  Age: 74 Year
  Sex: Female
  Weight: 63.6 kg

DRUGS (11)
  1. REMICADE [Suspect]
     Indication: RHEUMATOID ARTHRITIS
     Dosage: 29TH INFUSION
     Route: 042
     Dates: start: 20130307
  2. REMICADE [Suspect]
     Indication: RHEUMATOID ARTHRITIS
     Route: 042
     Dates: start: 20090119
  3. PREDNISONE [Concomitant]
     Indication: RHEUMATOID ARTHRITIS
     Route: 065
  4. METHOTREXATE [Concomitant]
     Indication: RHEUMATOID ARTHRITIS
     Route: 065
  5. WELLBUTRIN [Concomitant]
     Route: 065
  6. FOLIC ACID [Concomitant]
     Route: 065
  7. SYNTHROID [Concomitant]
     Route: 065
  8. MAVIK [Concomitant]
     Route: 065
  9. VENTOLIN [Concomitant]
     Dosage: AS NECESSARY
     Route: 065
  10. ESTRADOT [Concomitant]
     Route: 065
  11. TRAMADOL [Concomitant]
     Indication: PAIN
     Route: 065

REACTIONS (4)
  - Blood sodium decreased [Recovered/Resolved]
  - Diarrhoea [Recovered/Resolved]
  - Haematuria [Recovered/Resolved]
  - Bronchitis [Recovered/Resolved]
